FAERS Safety Report 9042663 (Version 1)
Quarter: 2013Q1

REPORT INFORMATION
  Report Type: Report from Study
  Country: US (occurrence: US)
  Receive Date: 20130129
  Receipt Date: 20130129
  Transmission Date: 20140127
  Serious: Yes (Other)
  Sender: FDA-Public Use
  Company Number: US-ABBOTT-12P-163-0905963-00

PATIENT
  Age: 39 Year
  Sex: Female

DRUGS (6)
  1. HUMIRA 40 MG/0.8 ML PEN [Suspect]
     Indication: OVERLAP SYNDROME
     Dates: start: 200911, end: 20120214
  2. DOXYCYCLINE [Suspect]
     Indication: LYME DISEASE
     Dates: start: 201012, end: 201012
  3. PREDNISONE [Concomitant]
     Indication: PRODUCT USED FOR UNKNOWN INDICATION
  4. HYDROXYCHLOROQUINE [Concomitant]
     Indication: PRODUCT USED FOR UNKNOWN INDICATION
  5. FOLIC ACID [Concomitant]
     Indication: PRODUCT USED FOR UNKNOWN INDICATION
  6. METHOTREXATE [Concomitant]
     Indication: PRODUCT USED FOR UNKNOWN INDICATION

REACTIONS (6)
  - Malignant melanoma [Recovered/Resolved]
  - Lyme disease [Unknown]
  - Rash [Unknown]
  - Melanocytic naevus [Recovered/Resolved]
  - Skin fibrosis [Not Recovered/Not Resolved]
  - Off label use [Recovered/Resolved]
